FAERS Safety Report 20092057 (Version 1)
Quarter: 2021Q4

REPORT INFORMATION
  Report Type: Spontaneous
  Country: FR (occurrence: FR)
  Receive Date: 20211119
  Receipt Date: 20211119
  Transmission Date: 20220303
  Serious: Yes (Hospitalization, Congenital Anomaly, Other)
  Sender: FDA-Public Use
  Company Number: FR-ABBVIE-21K-056-4167932-00

PATIENT
  Sex: Male
  Weight: 2.6 kg

DRUGS (3)
  1. VALPROATE SODIUM [Suspect]
     Active Substance: VALPROATE SODIUM
     Indication: Maternal exposure timing unspecified
     Route: 064
  2. DIMETHICONE\PANCRELIPASE [Suspect]
     Active Substance: DIMETHICONE\PANCRELIPASE
     Indication: Maternal exposure timing unspecified
     Route: 064
  3. FOLIC ACID [Concomitant]
     Active Substance: FOLIC ACID
     Indication: Maternal exposure timing unspecified

REACTIONS (41)
  - Pyelonephritis [Unknown]
  - Learning disability [Unknown]
  - Language disorder [Unknown]
  - Behaviour disorder [Unknown]
  - Speech disorder [Unknown]
  - Disturbance in attention [Unknown]
  - Bradyphrenia [Unknown]
  - Psychomotor hyperactivity [Unknown]
  - Disturbance in social behaviour [Unknown]
  - Educational problem [Unknown]
  - Speech disorder developmental [Unknown]
  - Speech sound disorder [Unknown]
  - Psychomotor skills impaired [Unknown]
  - Foetal growth restriction [Unknown]
  - Inguinal hernia [Unknown]
  - Knee deformity [Unknown]
  - Foot deformity [Unknown]
  - Congenital knee deformity [Unknown]
  - Unevaluable event [Unknown]
  - Communication disorder [Unknown]
  - Fine motor delay [Unknown]
  - Joint laxity [Unknown]
  - Dyscalculia [Unknown]
  - Reading disorder [Unknown]
  - Personal relationship issue [Unknown]
  - Dysmorphism [Unknown]
  - Cognitive disorder [Unknown]
  - Anxiety disorder [Unknown]
  - Urinary tract infection [Unknown]
  - Ear disorder [Unknown]
  - Auditory disorder [Unknown]
  - Nasal disorder [Unknown]
  - Oropharyngeal discomfort [Unknown]
  - Myopia [Unknown]
  - Astigmatism [Unknown]
  - Eating disorder [Unknown]
  - Fatigue [Unknown]
  - Asthenia [Unknown]
  - Aggression [Unknown]
  - Enuresis [Unknown]
  - Foetal exposure during pregnancy [Unknown]
